FAERS Safety Report 20751674 (Version 1)
Quarter: 2022Q2

REPORT INFORMATION
  Report Type: Spontaneous
  Country: SI (occurrence: SI)
  Receive Date: 20220426
  Receipt Date: 20220426
  Transmission Date: 20220721
  Serious: Yes (Other)
  Sender: FDA-Public Use
  Company Number: SI-NOVARTISPH-NVSC2022SI091476

PATIENT
  Age: 68 Year
  Sex: Female

DRUGS (3)
  1. KISQALI [Suspect]
     Active Substance: RIBOCICLIB
     Indication: Invasive lobular breast carcinoma
     Dosage: 600 MG (21 DAYS AND 1 WEEK OFF)
     Route: 048
     Dates: start: 201802, end: 202003
  2. FEMARA [Suspect]
     Active Substance: LETROZOLE
     Indication: Invasive lobular breast carcinoma
     Dosage: 2.5 MG
     Route: 048
     Dates: start: 201802, end: 202003
  3. DENOSUMAB [Concomitant]
     Active Substance: DENOSUMAB
     Indication: Product used for unknown indication
     Dosage: 120 MG (28 DAYS)
     Route: 058
     Dates: start: 201802, end: 202002

REACTIONS (6)
  - Pulmonary embolism [Unknown]
  - Metastases to liver [Recovering/Resolving]
  - Pneumonitis [Unknown]
  - Vertigo [Unknown]
  - Alopecia [Unknown]
  - Fatigue [Unknown]

NARRATIVE: CASE EVENT DATE: 20180301
